FAERS Safety Report 9248515 (Version 1)
Quarter: 2013Q2

REPORT INFORMATION
  Report Type: Spontaneous
  Country: US (occurrence: US)
  Receive Date: 20130423
  Receipt Date: 20130423
  Transmission Date: 20140414
  Serious: Yes (Other)
  Sender: FDA-Public Use
  Company Number: US-BAYER-2013-049526

PATIENT
  Age: 27 Year
  Sex: Female

DRUGS (8)
  1. OCELLA [Suspect]
  2. YASMIN [Suspect]
  3. TRAMADOL [Concomitant]
  4. VOLTAREN [Concomitant]
  5. ZYRTEC [Concomitant]
  6. PRILOSEC [Concomitant]
  7. IBUPROFEN [Concomitant]
  8. TYLENOL [PARACETAMOL] [Concomitant]

REACTIONS (1)
  - Deep vein thrombosis [None]
